FAERS Safety Report 23190782 (Version 2)
Quarter: 2023Q4

REPORT INFORMATION
  Report Type: Other
  Country: PL (occurrence: PL)
  Receive Date: 20231116
  Receipt Date: 20231128
  Transmission Date: 20240109
  Serious: Yes (Hospitalization)
  Sender: FDA-Public Use
  Company Number: PL-ALVOGEN-2023092541

PATIENT
  Age: 66 Year
  Sex: Female

DRUGS (2)
  1. FENTANYL [Suspect]
     Active Substance: FENTANYL\FENTANYL CITRATE
     Indication: Spinal pain
     Dosage: DOSE OF 75 ?G/H?2 PATCHES WAS GIVEN 4 DAYS BEFORE ADMISSION TO THE?HOSPITAL
     Route: 062
  2. FENTANYL [Suspect]
     Active Substance: FENTANYL\FENTANYL CITRATE
     Indication: Spinal pain
     Dosage: DOSE OF 75 ?G/H?1 PATCH AT THE SAME DOSE THE DAY BEFORE ADMISSION
     Route: 062

REACTIONS (12)
  - Acute respiratory distress syndrome [Recovered/Resolved]
  - Accidental poisoning [Recovered/Resolved]
  - Cardiopulmonary failure [Recovered/Resolved]
  - Liver injury [Recovered/Resolved]
  - Acute kidney injury [Recovered/Resolved]
  - Psychomotor retardation [Recovered/Resolved]
  - Shock [Recovered/Resolved]
  - C-reactive protein increased [Recovered/Resolved]
  - Hypotonia [Recovered/Resolved]
  - Toxicity to various agents [Unknown]
  - Hypotension [Recovered/Resolved]
  - Respiratory depression [Recovered/Resolved]
